FAERS Safety Report 5401473-8 (Version None)
Quarter: 2007Q3

REPORT INFORMATION
  Report Type: 
  Country: None (occurrence: None)
  Receive Date: 20070731
  Receipt Date: 20070719
  Transmission Date: 20080115
  Serious: Yes (Hospitalization)
  Sender: FDA-Public Use
  Company Number: GB-ROCHE-501817

PATIENT
  Age: 39 Year
  Sex: Female
  Weight: 95.8 kg

DRUGS (7)
  1. XENICAL [Suspect]
     Indication: OBESITY
     Route: 048
     Dates: start: 20060905
  2. CO-DYDRAMOL [Concomitant]
  3. BENDROFLUMETHIAZIDE [Concomitant]
  4. PRAVASTATIN [Concomitant]
  5. PROPANOL [Concomitant]
  6. RAMIPRIL [Concomitant]
  7. ATENOLOL [Concomitant]

REACTIONS (2)
  - CHEST PAIN [None]
  - HYPERTENSION [None]
